FAERS Safety Report 7815460-3 (Version None)
Quarter: 2011Q4

REPORT INFORMATION
  Report Type: 
  Country: None (occurrence: None)
  Receive Date: 20111014
  Receipt Date: 20111006
  Transmission Date: 20120403
  Serious: Yes (Disabling, Other)
  Sender: FDA-Public Use
  Company Number: PHEH2007US02902

PATIENT
  Sex: Female
  Weight: 73.016 kg

DRUGS (20)
  1. TORSEMIDE [Concomitant]
  2. PANTOPRAZOLE [Concomitant]
  3. AMBIEN [Concomitant]
  4. ZOMETA [Suspect]
     Dosage: 4 MG, UNK
  5. TOPRAL [Concomitant]
  6. FASLODEX [Concomitant]
  7. DIGOXIN [Concomitant]
  8. LISINOPRIL [Concomitant]
  9. IBUPROFEN [Concomitant]
  10. ARIMIDEX [Concomitant]
  11. REGLAN [Concomitant]
  12. ATIVAN [Concomitant]
  13. TAMOXIFEN CITRATE [Concomitant]
  14. SPIRONOLACTONE [Concomitant]
  15. METOPROLOL TARTRATE [Concomitant]
  16. CYMBALTA [Concomitant]
  17. LYRICA [Concomitant]
  18. PREDNISONE [Concomitant]
  19. AREDIA [Suspect]
     Dosage: 90 MG, UNK
  20. LOVENOX [Concomitant]

REACTIONS (63)
  - CHEST PAIN [None]
  - LUNG INFILTRATION [None]
  - ORTHOPNOEA [None]
  - GASTROOESOPHAGEAL REFLUX DISEASE [None]
  - DEHYDRATION [None]
  - HYPERTENSION [None]
  - ANAEMIA OF MALIGNANT DISEASE [None]
  - SPINAL DISORDER [None]
  - DECREASED INTEREST [None]
  - PLEURAL FIBROSIS [None]
  - ORAL DISORDER [None]
  - ASTHMA [None]
  - ARTHRALGIA [None]
  - BACK PAIN [None]
  - PULMONARY CONGESTION [None]
  - LYMPHADENOPATHY [None]
  - HAEMATURIA [None]
  - LEFT VENTRICULAR HYPERTROPHY [None]
  - VOMITING [None]
  - METASTASES TO BONE [None]
  - OSTEONECROSIS OF JAW [None]
  - HYPERPLASIA [None]
  - MITRAL VALVE INCOMPETENCE [None]
  - PYREXIA [None]
  - HYPOKALAEMIA [None]
  - CARDIAC FAILURE CONGESTIVE [None]
  - PAIN IN JAW [None]
  - ROTATOR CUFF SYNDROME [None]
  - CYSTOCELE [None]
  - PULMONARY HYPERTENSION [None]
  - CEREBELLAR ATROPHY [None]
  - DEPRESSION [None]
  - CARDIOMEGALY [None]
  - TOOTH DISORDER [None]
  - SPINAL OSTEOARTHRITIS [None]
  - LYMPHADENOPATHY MEDIASTINAL [None]
  - METAPLASIA [None]
  - RENAL CYST [None]
  - HEPATIC STEATOSIS [None]
  - MENTAL STATUS CHANGES [None]
  - CARDIOMYOPATHY [None]
  - RADIATION NEUROPATHY [None]
  - METASTASES TO LUNG [None]
  - ANXIETY [None]
  - TRICUSPID VALVE INCOMPETENCE [None]
  - HYPOCALCAEMIA [None]
  - METASTASES TO SPINE [None]
  - PAIN [None]
  - DYSPNOEA [None]
  - UTERINE FIBROSIS [None]
  - CERVICOBRACHIAL SYNDROME [None]
  - OSTEOLYSIS [None]
  - VENTRICULAR HYPOKINESIA [None]
  - OVARIAN CYST [None]
  - ATELECTASIS [None]
  - GENERAL PHYSICAL HEALTH DETERIORATION [None]
  - PLEURAL EFFUSION [None]
  - MUSCULOSKELETAL PAIN [None]
  - CALCULUS BLADDER [None]
  - TACHYCARDIA [None]
  - TRIGEMINAL NEURALGIA [None]
  - CONSTIPATION [None]
  - ASTHENIA [None]
